FAERS Safety Report 11644253 (Version 1)
Quarter: 2015Q4

REPORT INFORMATION
  Report Type: Spontaneous
  Country: AT (occurrence: AT)
  Receive Date: 20151020
  Receipt Date: 20151020
  Transmission Date: 20160304
  Serious: Yes (Other)
  Sender: FDA-Public Use
  Company Number: AT-JNJFOC-20130200013

PATIENT
  Age: 41 Year
  Sex: Male

DRUGS (4)
  1. METHYLPREDNISOLONE. [Concomitant]
     Active Substance: METHYLPREDNISOLONE
     Route: 065
  2. REMICADE [Suspect]
     Active Substance: INFLIXIMAB
     Indication: RHEUMATOID ARTHRITIS
     Route: 042
     Dates: end: 2012
  3. REMICADE [Suspect]
     Active Substance: INFLIXIMAB
     Indication: RHEUMATOID ARTHRITIS
     Route: 042
     Dates: start: 20030701
  4. METHOTREXATE [Concomitant]
     Active Substance: METHOTREXATE
     Route: 065

REACTIONS (2)
  - Influenza like illness [Recovered/Resolved]
  - Herpes zoster [Recovered/Resolved]

NARRATIVE: CASE EVENT DATE: 20111115
